FAERS Safety Report 22166944 (Version 1)
Quarter: 2023Q2

REPORT INFORMATION
  Report Type: Spontaneous
  Country: FR (occurrence: FR)
  Receive Date: 20230403
  Receipt Date: 20230403
  Transmission Date: 20230721
  Serious: Yes (Other)
  Sender: FDA-Public Use
  Company Number: None

PATIENT
  Age: 56 Year
  Sex: Female

DRUGS (3)
  1. FLUOXETINE [Suspect]
     Active Substance: FLUOXETINE HYDROCHLORIDE
     Indication: Product used for unknown indication
     Dosage: QD (UPTO 8 - 10, 20 MG TABLETS PER DAY)
     Route: 048
     Dates: start: 202301, end: 20230222
  2. ALPRAZOLAM [Suspect]
     Active Substance: ALPRAZOLAM
     Indication: Product used for unknown indication
     Dosage: QD (6 TO 8 TABLETS ALPRAZOLAM 0.25 MG DAILY)
     Route: 048
     Dates: start: 202301, end: 20230222
  3. LORMETAZEPAM [Suspect]
     Active Substance: LORMETAZEPAM
     Indication: Product used for unknown indication
     Dosage: 2 MILLIGRAM, QD (1 TABLET AT 2 MG IN THE EVENING)
     Route: 048
     Dates: start: 202301, end: 20230222

REACTIONS (2)
  - Drug dependence [Recovering/Resolving]
  - Intentional product misuse [Recovered/Resolved]

NARRATIVE: CASE EVENT DATE: 20230101
